FAERS Safety Report 12739399 (Version 1)
Quarter: 2016Q3

REPORT INFORMATION
  Report Type: Spontaneous
  Country: US (occurrence: US)
  Receive Date: 20160912
  Receipt Date: 20160912
  Transmission Date: 20161109
  Serious: Yes (Hospitalization)
  Sender: FDA-Public Use
  Company Number: None

PATIENT
  Age: 82 Year
  Sex: Male
  Weight: 69.2 kg

DRUGS (2)
  1. IDELALISIB [Suspect]
     Active Substance: IDELALISIB
     Indication: PNEUMONITIS
     Route: 048
     Dates: start: 20160128, end: 20160321
  2. RITUXIMAB [Suspect]
     Active Substance: RITUXIMAB
     Dates: start: 20160210, end: 20160311

REACTIONS (2)
  - Alveolitis allergic [None]
  - Dyspnoea [None]

NARRATIVE: CASE EVENT DATE: 20160317
